FAERS Safety Report 9909682 (Version 1)
Quarter: 2014Q1

REPORT INFORMATION
  Report Type: Spontaneous
  Country: CN (occurrence: CN)
  Receive Date: 20140219
  Receipt Date: 20140219
  Transmission Date: 20141002
  Serious: Yes (Death, Other)
  Sender: FDA-Public Use
  Company Number: CN-JNJFOC-20140206451

PATIENT
  Sex: 0

DRUGS (9)
  1. DOXORUBICIN [Suspect]
     Indication: NATURAL KILLER-CELL LYMPHOBLASTIC LYMPHOMA
     Dosage: ON DAY 1 (CHOP THERAPY)
     Route: 042
  2. DOXORUBICIN [Suspect]
     Indication: NATURAL KILLER-CELL LYMPHOBLASTIC LYMPHOMA
     Dosage: ADMINISTERED ON DAY 1-4 (EPOCH THERAPY)
     Route: 042
  3. CYCLOPHOSPHAMIDE [Suspect]
     Indication: NATURAL KILLER-CELL LYMPHOBLASTIC LYMPHOMA
     Dosage: ON DAY 1 (CHOP THERAPY)
     Route: 065
  4. CYCLOPHOSPHAMIDE [Suspect]
     Indication: NATURAL KILLER-CELL LYMPHOBLASTIC LYMPHOMA
     Dosage: OVER 15 MIN INTRAVENOUSLY ON DAY 5 (EPOCH)
     Route: 065
  5. VINCRISTINE [Suspect]
     Indication: NATURAL KILLER-CELL LYMPHOBLASTIC LYMPHOMA
     Dosage: CONTINOUS INFUSION (EPOCH THERAPY)
     Route: 065
  6. VINCRISTINE [Suspect]
     Indication: NATURAL KILLER-CELL LYMPHOBLASTIC LYMPHOMA
     Dosage: MAXIMAL DOSE 2.0 MG, ON DAY 1 (CHOP THERAPY)
     Route: 065
  7. PREDNISOLONE [Suspect]
     Indication: NATURAL KILLER-CELL LYMPHOBLASTIC LYMPHOMA
     Dosage: ON DAY 1-5, REPEATED AT 21-DAY INTERVALS (CHOP)
     Route: 048
  8. ETOPOSIDE [Suspect]
     Indication: NATURAL KILLER-CELL LYMPHOBLASTIC LYMPHOMA
     Dosage: 24 HOURS OF CONTINUOUS INFUSION
     Route: 042
  9. PREDNISONE [Suspect]
     Indication: NATURAL KILLER-CELL LYMPHOBLASTIC LYMPHOMA
     Dosage: ON DAY 1-5 (EPOCH THERAPY)
     Route: 048

REACTIONS (12)
  - Neoplasm progression [Fatal]
  - Iatrogenic injury [Fatal]
  - Bone marrow failure [Unknown]
  - Hyperglycaemia [Unknown]
  - Cardiotoxicity [Unknown]
  - Neutropenia [Unknown]
  - Anaemia [Unknown]
  - Thrombocytopenia [Unknown]
  - Hyperglycaemia [Unknown]
  - Blood fibrinogen decreased [Unknown]
  - Hypoalbuminaemia [Unknown]
  - Hypersensitivity [Unknown]
